FAERS Safety Report 9447772 (Version 1)
Quarter: 2013Q3

REPORT INFORMATION
  Report Type: Spontaneous
  Country: JP (occurrence: None)
  Receive Date: 20130805
  Receipt Date: 20130805
  Transmission Date: 20140515
  Serious: Yes (Other)
  Sender: FDA-Public Use
  Company Number: ADR-2013-01290

PATIENT
  Age: 63 Year
  Sex: Male
  Weight: 68 kg

DRUGS (1)
  1. GABALON [Suspect]
     Dosage: DAY
     Dates: start: 20130315

REACTIONS (5)
  - Subdural haematoma [None]
  - Intracranial hypotension [None]
  - Headache [None]
  - Cognitive disorder [None]
  - Cerebrospinal fluid leakage [None]
